FAERS Safety Report 23093409 (Version 1)
Quarter: 2023Q4

REPORT INFORMATION
  Report Type: Report from Study
  Country: US (occurrence: US)
  Receive Date: 20231022
  Receipt Date: 20231022
  Transmission Date: 20240110
  Serious: Yes (Other)
  Sender: FDA-Public Use
  Company Number: US-ABBVIE-5458070

PATIENT
  Sex: Male
  Weight: 70 kg

DRUGS (13)
  1. VENCLEXTA [Suspect]
     Active Substance: VENETOCLAX
     Indication: Chronic lymphocytic leukaemia
     Dosage: TAKE 20MG(2X10MG TABS) BY MOUTH EVERY DAY ON WEEK 1?LAST ADMIN DATE-2023
     Route: 048
     Dates: start: 202303
  2. VENCLEXTA [Suspect]
     Active Substance: VENETOCLAX
     Indication: Chronic lymphocytic leukaemia
     Dosage: TAKE 50MG (1-50MG TAB) BY MOUTH ON DAYS 1-7 ONCE DAILY, 50MG(1X50MG TAB) DAILY? BY MOUTH WEEK 2
     Route: 048
     Dates: start: 2023, end: 2023
  3. VENCLEXTA [Suspect]
     Active Substance: VENETOCLAX
     Indication: Chronic lymphocytic leukaemia
     Dosage: TAKE 100MG (1-100MG TAB) BY MOUTH ON DAYS 8-14 ONCE DAILY, 100MG(1X100MG TAB)? BY MOUTH DAILY WEEK 3
     Route: 048
     Dates: start: 2023, end: 2023
  4. VENCLEXTA [Suspect]
     Active Substance: VENETOCLAX
     Indication: Chronic lymphocytic leukaemia
     Dosage: TAKE 200MG (2-100MG TABS) BY MOUTH ON DAYS 15-21 ONCE DAILY, 200MG(2X100MG? TABS) DAILY WEEK 4
     Route: 048
     Dates: start: 2023, end: 2023
  5. VENCLEXTA [Suspect]
     Active Substance: VENETOCLAX
     Indication: Chronic lymphocytic leukaemia
     Dosage: TAKE 400MG (4-100MG TABS) BY MOUTH ON DAYS 22-28 ONCE DAILY
     Route: 048
     Dates: start: 202305
  6. VENCLEXTA [Suspect]
     Active Substance: VENETOCLAX
     Indication: Chronic lymphocytic leukaemia
     Dosage: RAMPED UP TO 300 MG
     Route: 048
     Dates: start: 2023, end: 2023
  7. IBUPROFEN [Concomitant]
     Active Substance: IBUPROFEN
     Indication: Pain
     Dosage: TIME INTERVAL: AS NECESSARY: TAKE 200 MG BY MOUTH EVERY 6 (SIX) HOURS AS NEEDED FOR MILD PAIN
     Route: 048
  8. SERTRALINE [Concomitant]
     Active Substance: SERTRALINE HYDROCHLORIDE
     Indication: Product used for unknown indication
     Dosage: FORM STRENGHT- 100 MG?TAKE 1.5 TABLETS (150 MG TOTAL) BY MOUTH EVERY MORNING
     Route: 048
  9. LIPITOR [Concomitant]
     Active Substance: ATORVASTATIN CALCIUM
     Indication: Product used for unknown indication
  10. ALLOPURINOL [Concomitant]
     Active Substance: ALLOPURINOL
     Indication: Product used for unknown indication
     Dosage: TAKE 1 TABLET (300 MG TOTAL) BY MOUTH (TWO) TIMES A DAY
     Route: 048
  11. ALPRAZOLAM [Concomitant]
     Active Substance: ALPRAZOLAM
     Indication: Anxiety
     Dosage: TIME INTERVAL: AS NECESSARY: FORM STRENGHT- 0.5 MG ?TAKE 0.5MG TABLETS (0.25 MG TOTAL) BY MOUTH E...
     Route: 048
  12. ATORVASTATIN [Concomitant]
     Active Substance: ATORVASTATIN
     Indication: Product used for unknown indication
     Dosage: TAKE 1 TABLET (20 MG TOTAL) BY MOUTH IN THE MORNING
     Route: 048
  13. ZOLOFT [Concomitant]
     Active Substance: SERTRALINE HYDROCHLORIDE
     Indication: Product used for unknown indication

REACTIONS (18)
  - Loss of consciousness [Recovered/Resolved]
  - Malaise [Recovered/Resolved]
  - Nausea [Not Recovered/Not Resolved]
  - Arthralgia [Not Recovered/Not Resolved]
  - Dehydration [Recovered/Resolved]
  - Fall [Recovered/Resolved]
  - Hyperhidrosis [Recovered/Resolved]
  - Back pain [Not Recovered/Not Resolved]
  - Flatulence [Recovered/Resolved]
  - Decreased activity [Unknown]
  - Myalgia [Not Recovered/Not Resolved]
  - Feeling abnormal [Recovered/Resolved]
  - Lethargy [Recovered/Resolved]
  - Syncope [Recovered/Resolved]
  - Eructation [Recovered/Resolved]
  - Body temperature increased [Recovered/Resolved]
  - Dyspepsia [Recovered/Resolved]
  - Malaise [Unknown]

NARRATIVE: CASE EVENT DATE: 20230101
